FAERS Safety Report 10523481 (Version 3)
Quarter: 2014Q4

REPORT INFORMATION
  Report Type: Spontaneous
  Country: JP (occurrence: JP)
  Receive Date: 20141017
  Receipt Date: 20141125
  Transmission Date: 20150528
  Serious: Yes (Hospitalization, Disabling)
  Sender: FDA-Public Use
  Company Number: JP-PFIZER INC-2014282303

PATIENT
  Age: 61 Year
  Sex: Male

DRUGS (1)
  1. FARMORUBICIN [Suspect]
     Active Substance: EPIRUBICIN HYDROCHLORIDE
     Indication: BLADDER CANCER
     Dosage: 40 MG, WEEKLY
     Route: 042
     Dates: start: 201303

REACTIONS (3)
  - Cystitis interstitial [Not Recovered/Not Resolved]
  - Bladder fibrosis [Not Recovered/Not Resolved]
  - Contracted bladder [Not Recovered/Not Resolved]

NARRATIVE: CASE EVENT DATE: 201402
